FAERS Safety Report 7575439-6 (Version None)
Quarter: 2011Q2

REPORT INFORMATION
  Report Type: 
  Country: None (occurrence: None)
  Receive Date: 20110627
  Receipt Date: 20110620
  Transmission Date: 20111010
  Serious: Yes (Death, Hospitalization)
  Sender: FDA-Public Use
  Company Number: JP-CELGENEUS-087-21880-11011897

PATIENT
  Sex: Male

DRUGS (29)
  1. REVLIMID [Suspect]
     Dosage: 10 MILLIGRAM
     Route: 048
     Dates: start: 20101207, end: 20101216
  2. DEXAMETHASONE SODIUM PHOSPHATE [Concomitant]
     Dosage: 10 MILLIGRAM
     Route: 041
     Dates: start: 20110404, end: 20110405
  3. BIOFERMIN [Concomitant]
     Dosage: 3 GRAM
     Route: 048
     Dates: start: 20110114, end: 20110405
  4. LANSOPRAZOLE [Concomitant]
     Dosage: 15 MILLIGRAM
     Route: 048
     Dates: start: 20101116
  5. REVLIMID [Suspect]
     Indication: MULTIPLE MYELOMA
     Dosage: 25 MILLIGRAM
     Route: 048
     Dates: start: 20101116, end: 20101123
  6. REVLIMID [Suspect]
     Dosage: 25 MILLIGRAM
     Route: 048
     Dates: start: 20101217, end: 20110101
  7. MARZULENE [Concomitant]
     Dosage: 1.5 GRAM
     Route: 048
     Dates: start: 20110114, end: 20110405
  8. SULFAMETHOXAZOLE [Concomitant]
     Indication: PROPHYLAXIS
     Dosage: 1 TABLET
     Route: 048
     Dates: start: 20101116
  9. DEXAMETHASONE SODIUM PHOSPHATE [Concomitant]
     Dosage: 10 MILLIGRAM
     Route: 041
     Dates: start: 20110212, end: 20110303
  10. REVLIMID [Suspect]
     Dosage: 10 MILLIGRAM
     Route: 048
     Dates: start: 20110331, end: 20110331
  11. MARZULENE [Concomitant]
     Dosage: 1.5 GRAM
     Route: 048
     Dates: start: 20101116
  12. FUNGUARD [Concomitant]
     Indication: PROPHYLAXIS
     Dosage: 75 MILLIGRAM
     Route: 041
     Dates: start: 20110122, end: 20110310
  13. REVLIMID [Suspect]
     Dosage: 10 MILLIGRAM
     Route: 048
     Dates: start: 20110401, end: 20110404
  14. DEXAMETHASONE SODIUM PHOSPHATE [Concomitant]
     Dosage: 10 MILLIGRAM
     Route: 041
     Dates: start: 20110312, end: 20110323
  15. SULFAMETHOXAZOLE [Concomitant]
     Dosage: 1 TABLET
     Route: 048
     Dates: start: 20110114, end: 20110405
  16. REVLIMID [Suspect]
     Dosage: 25 MILLIGRAM
     Route: 048
     Dates: start: 20110114, end: 20110203
  17. REVLIMID [Suspect]
     Dosage: 10 MILLIGRAM
     Route: 048
     Dates: start: 20110211, end: 20110303
  18. DECADRON [Concomitant]
     Indication: MULTIPLE MYELOMA
     Dosage: 10 MILLIGRAM
     Route: 048
     Dates: start: 20101117, end: 20101128
  19. DECADRON [Concomitant]
     Dosage: 8 MILLIGRAM
     Route: 048
     Dates: start: 20101208, end: 20101211
  20. DEXAMETHASONE SODIUM PHOSPHATE [Concomitant]
     Indication: MULTIPLE MYELOMA
     Dosage: 10 MILLIGRAM
     Route: 041
     Dates: start: 20101224, end: 20101227
  21. BIOFERMIN [Concomitant]
     Dosage: 3 GRAM
     Route: 048
     Dates: start: 20101116
  22. LANSOPRAZOLE [Concomitant]
     Dosage: 15 MILLIGRAM
     Route: 048
     Dates: start: 20110114, end: 20110405
  23. MAGMITT [Concomitant]
     Indication: MULTIPLE MYELOMA
     Dosage: 990 MILLIGRAM
     Route: 048
     Dates: start: 20110114, end: 20110405
  24. FLAVITAN [Concomitant]
     Indication: MULTIPLE MYELOMA
     Dosage: 30 MILLIGRAM
     Route: 048
     Dates: start: 20110218, end: 20110322
  25. REVLIMID [Suspect]
     Dosage: 10 MILLIGRAM
     Route: 048
     Dates: start: 20110311, end: 20110323
  26. DEXAMETHASONE SODIUM PHOSPHATE [Concomitant]
     Dosage: 10 MILLIGRAM
     Route: 041
     Dates: start: 20110115, end: 20110126
  27. FLUCONAZOLE [Concomitant]
     Dosage: 100 MILLIGRAM
     Route: 048
     Dates: start: 20101116
  28. FLUCONAZOLE [Concomitant]
     Dosage: 100 MILLIGRAM
     Route: 048
     Dates: start: 20110114, end: 20110125
  29. ZOLPIDEM [Concomitant]
     Indication: MULTIPLE MYELOMA
     Dosage: 5 MILLIGRAM
     Route: 048
     Dates: start: 20110114, end: 20110405

REACTIONS (5)
  - INFLUENZA [None]
  - NEUTROPENIA [None]
  - SEPSIS [None]
  - HYPOTHYROIDISM [None]
  - THROMBOCYTOPENIA [None]
